FAERS Safety Report 24844789 (Version 1)
Quarter: 2025Q1

REPORT INFORMATION
  Report Type: Spontaneous
  Country: FR (occurrence: FR)
  Receive Date: 20250115
  Receipt Date: 20250115
  Transmission Date: 20250409
  Serious: Yes (Hospitalization)
  Sender: NOVARTIS
  Company Number: None

PATIENT
  Age: 52 Year
  Sex: Female
  Weight: 52 kg

DRUGS (2)
  1. CERTICAN [Suspect]
     Active Substance: EVEROLIMUS
     Indication: Renal transplant
     Dosage: 2 MG, QD (1-0-1, COMPRIM?)
     Route: 048
     Dates: start: 20230901
  2. TACROLIMUS [Suspect]
     Active Substance: TACROLIMUS
     Indication: Renal transplant
     Dosage: 2 MG, QD (1-0-1)
     Route: 048
     Dates: start: 20230901

REACTIONS (1)
  - Bacterial pericarditis [Not Recovered/Not Resolved]

NARRATIVE: CASE EVENT DATE: 20241105
